FAERS Safety Report 4316248-0 (Version None)
Quarter: 2004Q1

REPORT INFORMATION
  Report Type: 
  Country: None (occurrence: None)
  Receive Date: 20040312
  Receipt Date: 20040303
  Transmission Date: 20041129
  Serious: Yes (Death)
  Sender: FDA-Public Use
  Company Number: FR-ROCHE-360612

PATIENT
  Age: 68 Year
  Sex: Male

DRUGS (12)
  1. ROCEPHIN [Suspect]
     Indication: DRUG USE FOR UNKNOWN INDICATION
     Route: 065
     Dates: start: 20040105, end: 20040115
  2. TRACLEER [Suspect]
     Indication: DRUG USE FOR UNKNOWN INDICATION
     Route: 048
     Dates: start: 20040108, end: 20040115
  3. VFEND [Suspect]
     Indication: DRUG USE FOR UNKNOWN INDICATION
     Route: 048
  4. OMIX [Concomitant]
  5. DI ANTALVIC [Concomitant]
  6. VASTEN [Concomitant]
  7. PLAQUENIL [Concomitant]
  8. HYDROCORTISONE [Concomitant]
  9. XANAX [Concomitant]
  10. NEURONTIN [Concomitant]
  11. INSULIN [Concomitant]
  12. SINTROM [Concomitant]

REACTIONS (2)
  - CARDIAC FAILURE [None]
  - HEPATIC ENZYME INCREASED [None]
